FAERS Safety Report 4539885-7 (Version None)
Quarter: 2004Q4

REPORT INFORMATION
  Report Type: 
  Country: None (occurrence: None)
  Receive Date: 20041228
  Receipt Date: 20041122
  Transmission Date: 20050328
  Serious: Yes (Hospitalization, Other)
  Sender: FDA-Public Use
  Company Number: US-BRISTOL-MYERS SQUIBB COMPANY-12772976

PATIENT
  Age: 64 Year
  Sex: Male

DRUGS (14)
  1. CETUXIMAB [Suspect]
     Indication: OESOPHAGEAL CARCINOMA
     Dosage: THERAPY INITIATED 01-OCT-2004,GIVEN WEEKLY WEEKS 1-8
     Route: 042
     Dates: start: 20041112, end: 20041112
  2. CISPLATIN [Suspect]
     Indication: OESOPHAGEAL CARCINOMA
     Dosage: THERAPY INITIATED 08-OCT-04,GIVEN ON WEEKS 1,2,4, AND 5
     Route: 042
     Dates: start: 20041112, end: 20041112
  3. IRINOTECAN [Suspect]
     Indication: OESOPHAGEAL CARCINOMA
     Dosage: THERAPY INITIATED 08-OCT-04,GIVEN WEEK 1,2,4 AND 5
     Route: 042
     Dates: start: 20041112, end: 20041112
  4. RADIATION THERAPY [Suspect]
     Indication: OESOPHAGEAL CARCINOMA
     Dosage: DOSE 180 CGY-CENTOGRAY (DAY 15 WEEK 1-5). COMPLETED THERAPY 17-NOV-04
     Dates: start: 20041007, end: 20041117
  5. ZOFRAN [Concomitant]
  6. PROTONIX [Concomitant]
  7. M.V.I. [Concomitant]
  8. MICARDIS [Concomitant]
  9. LOMOTIL [Concomitant]
  10. KAOPECTATE [Concomitant]
  11. HYDROCHLOROTHIAZIDE [Concomitant]
  12. COMPAZINE [Concomitant]
  13. CLINDAMYCIN HCL [Concomitant]
     Dosage: 1% GEL
  14. ATIVAN [Concomitant]

REACTIONS (33)
  - ANAEMIA [None]
  - ANOREXIA [None]
  - ARRHYTHMIA [None]
  - ATELECTASIS [None]
  - ATRIAL FIBRILLATION [None]
  - BLOOD CALCIUM DECREASED [None]
  - BLOOD GLUCOSE INCREASED [None]
  - BLOOD POTASSIUM DECREASED [None]
  - CANDIDIASIS [None]
  - CHEST PAIN [None]
  - CONVULSION [None]
  - DEHYDRATION [None]
  - DEPRESSED LEVEL OF CONSCIOUSNESS [None]
  - DEPRESSION [None]
  - DIARRHOEA [None]
  - DIZZINESS [None]
  - DYSPNOEA EXERTIONAL [None]
  - FATIGUE [None]
  - FEBRILE NEUTROPENIA [None]
  - HYPOMAGNESAEMIA [None]
  - HYPOTENSION [None]
  - INFLAMMATION [None]
  - MARKEDLY REDUCED DIETARY INTAKE [None]
  - MYOCARDIAL INFARCTION [None]
  - NAUSEA [None]
  - NIGHT SWEATS [None]
  - ODYNOPHAGIA [None]
  - PERICARDIAL EFFUSION [None]
  - PLATELET COUNT DECREASED [None]
  - PROTHROMBIN TIME PROLONGED [None]
  - RENAL FAILURE CHRONIC [None]
  - VOMITING [None]
  - WHITE BLOOD CELL COUNT DECREASED [None]
